FAERS Safety Report 25175692 (Version 1)
Quarter: 2025Q2

REPORT INFORMATION
  Report Type: Spontaneous
  Country: US (occurrence: US)
  Receive Date: 20250408
  Receipt Date: 20250408
  Transmission Date: 20250716
  Serious: No
  Sender: JOHNSON AND JOHNSON
  Company Number: US-JNJFOC-20250270778

PATIENT
  Sex: Female

DRUGS (4)
  1. UPTRAVI [Suspect]
     Active Substance: SELEXIPAG
     Indication: Product used for unknown indication
     Route: 048
  2. AMBRISENTAN [Suspect]
     Active Substance: AMBRISENTAN
     Indication: Pulmonary arterial hypertension
     Dates: start: 20200214
  3. ELIQUIS [Concomitant]
     Active Substance: APIXABAN
  4. DILTIAZEM [Concomitant]
     Active Substance: DILTIAZEM

REACTIONS (9)
  - Joint stiffness [Unknown]
  - Arthritis [Unknown]
  - Arthralgia [Unknown]
  - Cough [Unknown]
  - Myalgia [Unknown]
  - Gait disturbance [Unknown]
  - Hypokinesia [Unknown]
  - Swelling [Unknown]
  - Musculoskeletal stiffness [Unknown]
